FAERS Safety Report 9490465 (Version 1)
Quarter: 2013Q3

REPORT INFORMATION
  Report Type: Spontaneous
  Country: US (occurrence: None)
  Receive Date: 20130827
  Receipt Date: 20130827
  Transmission Date: 20140515
  Serious: Yes (Other)
  Sender: FDA-Public Use
  Company Number: None

PATIENT
  Age: 76 None
  Sex: Female

DRUGS (7)
  1. LYRICA [Suspect]
     Indication: NEUROPATHY PERIPHERAL
     Dosage: 75 MG ORDERED 1 DAY FOR 5 DAYS THEN 2 AM + PM MOUTH
     Route: 048
     Dates: start: 20130806, end: 20130606
  2. IBUPROFEN [Concomitant]
  3. VIT D [Concomitant]
  4. WHEAT GRASS [Concomitant]
  5. OSCAL CHEWABLE [Concomitant]
  6. B 12 [Concomitant]
  7. CURAMIN [Concomitant]

REACTIONS (5)
  - Feeling drunk [None]
  - Pharyngeal haemorrhage [None]
  - Epistaxis [None]
  - Dizziness [None]
  - Crying [None]
